FAERS Safety Report 24997471 (Version 1)
Quarter: 2025Q1

REPORT INFORMATION
  Report Type: Spontaneous
  Country: US (occurrence: US)
  Receive Date: 20250222
  Receipt Date: 20250222
  Transmission Date: 20250409
  Serious: Yes (Hospitalization)
  Sender: NOVITIUM PHARMA
  Company Number: US-NOVITIUMPHARMA-2025USNVP00403

PATIENT
  Age: 12 Year
  Sex: Female

DRUGS (9)
  1. PREDNISONE [Suspect]
     Active Substance: PREDNISONE
     Indication: Henoch-Schonlein purpura
     Route: 048
  2. PREDNISONE [Suspect]
     Active Substance: PREDNISONE
     Indication: Keratitis interstitial
  3. PREDNISONE [Suspect]
     Active Substance: PREDNISONE
     Indication: Iridocyclitis
  4. PREDNISONE [Suspect]
     Active Substance: PREDNISONE
     Indication: Deafness neurosensory
  5. PREDNISOLONE [Concomitant]
     Active Substance: PREDNISOLONE
     Indication: Henoch-Schonlein purpura
  6. PREDNISOLONE [Concomitant]
     Active Substance: PREDNISOLONE
     Indication: Keratitis interstitial
  7. PREDNISOLONE [Concomitant]
     Active Substance: PREDNISOLONE
     Indication: Iridocyclitis
  8. Immune-Globulin [Concomitant]
     Indication: Kawasaki^s disease
  9. METHOTREXATE [Concomitant]
     Active Substance: METHOTREXATE
     Indication: Cogan^s syndrome
     Route: 058

REACTIONS (1)
  - Drug resistance [Unknown]
